FAERS Safety Report 9598282 (Version 1)
Quarter: 2013Q4

REPORT INFORMATION
  Report Type: Spontaneous
  Country: US (occurrence: US)
  Receive Date: 20131004
  Receipt Date: 20131004
  Transmission Date: 20140711
  Serious: No
  Sender: FDA-Public Use
  Company Number: US-AMGEN-USASP2013022970

PATIENT
  Age: 52 Year
  Sex: Female
  Weight: 98.87 kg

DRUGS (22)
  1. ENBREL [Suspect]
     Indication: PRODUCT USED FOR UNKNOWN INDICATION
     Dosage: 50 MG, QWK
     Route: 058
  2. LODINE XL [Concomitant]
     Dosage: 400 MG, UNK
  3. PREMARIN [Concomitant]
     Dosage: 1.25 MG, UNK
  4. ZOLOFT [Concomitant]
     Dosage: 50 MG, UNK
  5. NEURONTIN [Concomitant]
     Dosage: 100 MG, UNK
  6. LANTUS [Concomitant]
     Dosage: UNK, 100/ML
  7. BUSPIRON                           /00791501/ [Concomitant]
     Dosage: 15 MG, UNK
  8. METFORMIN [Concomitant]
     Dosage: 500 MG, UNK
  9. NOVOLOG [Concomitant]
     Dosage: UNK,100/ML
  10. FLONASE [Concomitant]
     Dosage: SPR ,0.05 %, UNK
  11. EPIPEN [Concomitant]
     Dosage: 0.3 MG, UNK
  12. TRAMADOL HCL [Concomitant]
     Dosage: 300 MG, ER,UNK
  13. CLARITIN-D [Concomitant]
     Dosage: UNK, 5-120MG
  14. MIRAPEX [Concomitant]
     Dosage: 2.25 MG, UNK
  15. VITAMIN B-12 [Concomitant]
     Dosage: 1000 CR, UNK
  16. LIDODERM [Concomitant]
     Dosage: DIS, 5 %, UNK
  17. FISH OIL [Concomitant]
     Dosage: UNK
  18. FOLIC ACID [Concomitant]
     Dosage: UNK
  19. ASPIRIN [Concomitant]
     Dosage: 81 MG, UNK
  20. NORCO [Concomitant]
     Dosage: UNK,7.5-325
  21. BUTRANS                            /00444001/ [Concomitant]
     Dosage: 20 MUG, QH
  22. METHOTREXATE [Concomitant]
     Dosage: 20 MG, UNK

REACTIONS (1)
  - Bronchopneumonia [Unknown]
